FAERS Safety Report 7064848-X (Version None)
Quarter: 2010Q4

REPORT INFORMATION
  Report Type: 
  Country: None (occurrence: None)
  Receive Date: 20101027
  Receipt Date: 19870824
  Transmission Date: 20110411
  Serious: Yes (Death)
  Sender: FDA-Public Use
  Company Number: JP-ROCHE-870940005001

PATIENT
  Sex: Male
  Weight: 50 kg

DRUGS (8)
  1. ROCEPHIN [Suspect]
     Route: 042
     Dates: start: 19870130, end: 19870205
  2. PENTCILLIN [Suspect]
     Indication: URINARY TRACT INFECTION
     Route: 042
     Dates: start: 19870129, end: 19870205
  3. VEEN D [Concomitant]
     Indication: URINARY TRACT INFECTION
     Route: 042
     Dates: start: 19870129, end: 19870205
  4. ASCORBIC ACID [Concomitant]
     Indication: URINARY TRACT INFECTION
     Route: 042
     Dates: start: 19870129, end: 19870205
  5. VITAMIN B COMPLEX CAP [Concomitant]
     Indication: URINARY TRACT INFECTION
     Route: 042
     Dates: start: 19870129, end: 19870205
  6. VENOGLOBULIN [Concomitant]
     Indication: INFECTION
     Route: 042
     Dates: start: 19870130
  7. PERDIPINE [Concomitant]
     Route: 048
     Dates: end: 19870205
  8. CAPTOPRIL [Concomitant]
     Route: 048
     Dates: end: 19870205

REACTIONS (2)
  - DEATH [None]
  - PSYCHOTIC DISORDER [None]
